FAERS Safety Report 4914990-1 (Version None)
Quarter: 2006Q1

REPORT INFORMATION
  Report Type: 
  Country: None (occurrence: None)
  Receive Date: 20060215
  Receipt Date: 20060215
  Transmission Date: 20060701
  Serious: No
  Sender: FDA-Public Use
  Company Number: None

PATIENT
  Age: 62 Year
  Sex: Male
  Weight: 78.2 kg

DRUGS (7)
  1. CISPLATIN [Suspect]
     Indication: METASTATIC NEOPLASM
     Dosage: 147MG
  2. LEVOTHYROXINE SODIUM [Concomitant]
  3. TARCEVA [Concomitant]
  4. AMBIEN [Concomitant]
  5. ZANTAC [Concomitant]
  6. PROVIGIL [Concomitant]
  7. WARFARIN SODIUM [Concomitant]

REACTIONS (2)
  - ANAPHYLACTIC REACTION [None]
  - INFUSION RELATED REACTION [None]
